FAERS Safety Report 5694548-X (Version None)
Quarter: 2008Q2

REPORT INFORMATION
  Report Type: 
  Country: None (occurrence: None)
  Receive Date: 20080404
  Receipt Date: 20080328
  Transmission Date: 20081010
  Serious: Yes (Other)
  Sender: FDA-Public Use
  Company Number: AU-AVENTIS-200812817GDDC

PATIENT
  Age: 74 Year
  Sex: Male

DRUGS (4)
  1. LANTUS [Suspect]
     Route: 058
     Dates: start: 20061001
  2. AUTOPEN INSULIN INJECTION PEN [Suspect]
  3. ASTRIX [Concomitant]
  4. COVERSYL                           /00790701/ [Concomitant]

REACTIONS (2)
  - CATARACT [None]
  - HEART VALVE INCOMPETENCE [None]
